FAERS Safety Report 6210638-7 (Version None)
Quarter: 2009Q2

REPORT INFORMATION
  Report Type: 
  Country: None (occurrence: None)
  Receive Date: 20090528
  Receipt Date: 20090515
  Transmission Date: 20091009
  Serious: Yes (Other)
  Sender: FDA-Public Use
  Company Number: 235527K09USA

PATIENT
  Age: 64 Year
  Sex: Female

DRUGS (4)
  1. REBIF [Suspect]
     Indication: MULTIPLE SCLEROSIS
     Dosage: 44 MCG, 3 IN 1 WEEKS, SUBCUTANEOUS
     Route: 058
     Dates: start: 20070801
  2. ZETIA [Concomitant]
  3. NEURONTIN [Concomitant]
  4. CYMBALTA [Concomitant]

REACTIONS (5)
  - CARDIAC DISORDER [None]
  - CATARACT [None]
  - CHEST PAIN [None]
  - DYSPNOEA [None]
  - VISUAL IMPAIRMENT [None]
